FAERS Safety Report 14975464 (Version 1)
Quarter: 2018Q2

REPORT INFORMATION
  Report Type: Spontaneous
  Country: US (occurrence: US)
  Receive Date: 20180605
  Receipt Date: 20180605
  Transmission Date: 20180711
  Serious: No
  Sender: FDA-Public Use
  Company Number: US-ROCHE-1931126

PATIENT
  Sex: Female

DRUGS (2)
  1. FOLIC ACID. [Concomitant]
     Active Substance: FOLIC ACID
     Route: 065
  2. ACTEMRA [Suspect]
     Active Substance: TOCILIZUMAB
     Indication: RHEUMATOID ARTHRITIS
     Dosage: 400 MG SINGLE DOSE 20 ML VIAL.
     Route: 042
     Dates: start: 20160425

REACTIONS (2)
  - Drug ineffective [Unknown]
  - No adverse event [Unknown]
